FAERS Safety Report 16673259 (Version 1)
Quarter: 2019Q3

REPORT INFORMATION
  Report Type: Spontaneous
  Country: US (occurrence: US)
  Receive Date: 20190806
  Receipt Date: 20190806
  Transmission Date: 20191004
  Serious: No
  Sender: FDA-Public Use
  Company Number: US-GLAXOSMITHKLINE-US2019139379

PATIENT
  Age: 93 Year
  Sex: Female

DRUGS (1)
  1. ABREVA [Suspect]
     Active Substance: DOCOSANOL
     Indication: LIP PAIN
     Dosage: UNK UNK, BID
     Route: 061
     Dates: start: 20190723, end: 20190729

REACTIONS (8)
  - Lip pain [Not Recovered/Not Resolved]
  - Incorrect product administration duration [Unknown]
  - Drug ineffective for unapproved indication [Unknown]
  - Lip erythema [Not Recovered/Not Resolved]
  - Inappropriate schedule of product administration [Unknown]
  - Condition aggravated [Not Recovered/Not Resolved]
  - Lip dry [Not Recovered/Not Resolved]
  - Product use in unapproved indication [Unknown]

NARRATIVE: CASE EVENT DATE: 20190723
